FAERS Safety Report 22965058 (Version 3)
Quarter: 2024Q1

REPORT INFORMATION
  Report Type: Spontaneous
  Country: IT (occurrence: IT)
  Receive Date: 20230921
  Receipt Date: 20240225
  Transmission Date: 20240409
  Serious: Yes (Hospitalization)
  Sender: FDA-Public Use
  Company Number: None

PATIENT
  Age: 61 Year
  Sex: Male

DRUGS (4)
  1. RINVOQ [Suspect]
     Active Substance: UPADACITINIB
     Indication: Psoriatic arthropathy
     Dosage: 15 MG /DAY
     Route: 048
     Dates: start: 20230320, end: 20230715
  2. ACETAMINOPHEN [Concomitant]
     Active Substance: ACETAMINOPHEN
     Indication: Analgesic therapy
     Dosage: TIME INTERVAL: AS NECESSARY: ANALGESICS (TRAMADOL/PARACETAMOL) AS NEEDED, TOOK A MINIMUM DOSAGE O...
  3. METHYLPREDNISOLONE [Concomitant]
     Active Substance: METHYLPREDNISOLONE
     Indication: Analgesic therapy
  4. TRAMADOL [Concomitant]
     Active Substance: TRAMADOL\TRAMADOL HYDROCHLORIDE
     Indication: Analgesic therapy
     Dosage: TIME INTERVAL: AS NECESSARY: ANALGESICS (TRAMADOL/PARACETAMOL) AS NEEDED, TOOK A MINIMUM DOSAGE O...

REACTIONS (3)
  - Diverticulum intestinal [Recovered/Resolved]
  - Azotaemia [Unknown]
  - Azotaemia [Unknown]

NARRATIVE: CASE EVENT DATE: 20230715
